FAERS Safety Report 6175355-0 (Version None)
Quarter: 2009Q2

REPORT INFORMATION
  Report Type: 
  Country: None (occurrence: None)
  Receive Date: 20090429
  Receipt Date: 20090423
  Transmission Date: 20091009
  Serious: Yes (Death, Life-Threatening, Hospitalization, Other)
  Sender: FDA-Public Use
  Company Number: 1000003679

PATIENT
  Age: 54 Year
  Sex: Male
  Weight: 75.7507 kg

DRUGS (2)
  1. ESCITALOPRAM [Suspect]
     Indication: DEPRESSION
     Dosage: 20 MG (20 MG,1 IN 1 D), 10 MG (10MG1 IN 1 D)
     Dates: start: 20081125, end: 20090117
  2. ESCITALOPRAM [Suspect]
     Indication: DEPRESSION
     Dosage: 20 MG (20 MG,1 IN 1 D), 10 MG (10MG1 IN 1 D)
     Dates: start: 20081112

REACTIONS (6)
  - ALCOHOL POISONING [None]
  - COMA [None]
  - DRUG INTERACTION [None]
  - FALL [None]
  - HEAD INJURY [None]
  - SUBDURAL HAEMATOMA [None]
